FAERS Safety Report 24905787 (Version 1)
Quarter: 2025Q1

REPORT INFORMATION
  Report Type: Spontaneous
  Country: US (occurrence: US)
  Receive Date: 20250130
  Receipt Date: 20250130
  Transmission Date: 20250409
  Serious: No
  Sender: LABORATOIRES SERB
  Company Number: US-SERB S.A.S.-2170112

PATIENT
  Age: 45 Year
  Sex: Female

DRUGS (2)
  1. VISTOGARD [Suspect]
     Active Substance: URIDINE TRIACETATE
     Indication: Toxicity to various agents
     Dates: start: 20240423, end: 20240423
  2. VISTOGARD [Suspect]
     Active Substance: URIDINE TRIACETATE
     Indication: Dihydropyrimidine dehydrogenase deficiency

REACTIONS (2)
  - Vomiting [Unknown]
  - Drug intolerance [Unknown]

NARRATIVE: CASE EVENT DATE: 20240424
